FAERS Safety Report 22699123 (Version 2)
Quarter: 2024Q1

REPORT INFORMATION
  Report Type: Report from Study
  Country: CA (occurrence: CA)
  Receive Date: 20230713
  Receipt Date: 20240131
  Transmission Date: 20240410
  Serious: Yes (Other)
  Sender: FDA-Public Use
  Company Number: CA-CELLTRION INC.-2023CA013826

PATIENT

DRUGS (22)
  1. RITUXIMAB [Suspect]
     Active Substance: RITUXIMAB
     Indication: Rheumatoid arthritis
     Dosage: 1000 MILLIGRAM, 1 EVERY 15 DAYS
     Route: 041
  2. RITUXIMAB [Suspect]
     Active Substance: RITUXIMAB
     Indication: Myositis
  3. RITUXIMAB [Suspect]
     Active Substance: RITUXIMAB
     Indication: Antisynthetase syndrome
  4. MYCOPHENOLATE MOFETIL [Suspect]
     Active Substance: MYCOPHENOLATE MOFETIL
     Indication: Myositis
     Dosage: 500.0 MILLIGRAM, 2 EVERY 1 DAYS
     Route: 065
  5. MYCOPHENOLATE MOFETIL [Suspect]
     Active Substance: MYCOPHENOLATE MOFETIL
     Indication: Interstitial lung disease
     Dosage: 1.5 MILLIGRAM, 2 EVERY 1 DAYS
     Route: 065
  6. MYCOPHENOLATE MOFETIL [Suspect]
     Active Substance: MYCOPHENOLATE MOFETIL
     Indication: Arthritis
     Dosage: 1 GRAM, 2 EVERY 1 DAYS
     Route: 065
  7. MYCOPHENOLATE MOFETIL [Suspect]
     Active Substance: MYCOPHENOLATE MOFETIL
     Indication: Antisynthetase syndrome
  8. AZATHIOPRINE [Concomitant]
     Active Substance: AZATHIOPRINE
  9. BENADRYL [Concomitant]
     Active Substance: DIPHENHYDRAMINE HYDROCHLORIDE
     Indication: Premedication
     Dosage: 50 MILLIGRAM
     Route: 048
  10. CALCIUM CARBONATE [Concomitant]
     Active Substance: CALCIUM CARBONATE
  11. CLONAZEPAM [Concomitant]
     Active Substance: CLONAZEPAM
  12. METHYLPREDNISOLONE SODIUM SUCCINATE [Concomitant]
     Active Substance: METHYLPREDNISOLONE SODIUM SUCCINATE
     Indication: Premedication
     Dosage: 100.0 MILLIGRAM
     Route: 042
  13. PREDNISONE [Concomitant]
     Active Substance: PREDNISONE
     Dosage: 5.0 MILLIGRAM, 1 EVERY 1 DAYS
     Route: 065
  14. PREDNISONE [Concomitant]
     Active Substance: PREDNISONE
     Dosage: 15.0 MILLIGRAM
     Route: 065
  15. PREDNISONE [Concomitant]
     Active Substance: PREDNISONE
     Dosage: 50.0 MILLIGRAM, 1 EVERY 1 DAYS
     Route: 065
  16. PREDNISONE [Concomitant]
     Active Substance: PREDNISONE
     Dosage: 10.0 MILLIGRAM
     Route: 065
  17. PREDNISONE [Concomitant]
     Active Substance: PREDNISONE
     Dosage: UNK
     Route: 065
  18. RANITIDINE [Concomitant]
     Active Substance: RANITIDINE
     Dosage: 150.0 MILLIGRAM
     Route: 065
  19. RISEDRONATE SODIUM [Concomitant]
     Active Substance: RISEDRONATE SODIUM
     Dosage: 150.0 MILLIGRAM, 2 EVERY 1 DAYS
     Route: 048
  20. SEPTRA [Concomitant]
     Active Substance: SULFAMETHOXAZOLE\TRIMETHOPRIM
  21. TYLENOL [Concomitant]
     Active Substance: ACETAMINOPHEN
     Indication: Premedication
     Dosage: 650.0 MILLIGRAM
     Route: 048
  22. XARELTO [Concomitant]
     Active Substance: RIVAROXABAN
     Dosage: 20.0 MILLIGRAM, 1 EVERY 1 DAYS
     Route: 048

REACTIONS (5)
  - Blood pressure systolic increased [Unknown]
  - Hip fracture [Unknown]
  - Heart rate decreased [Unknown]
  - Off label use [Unknown]
  - Intentional product use issue [Unknown]
